FAERS Safety Report 6277991-X (Version None)
Quarter: 2009Q3

REPORT INFORMATION
  Report Type: 
  Country: None (occurrence: None)
  Receive Date: 20090722
  Receipt Date: 20090714
  Transmission Date: 20100115
  Serious: Yes (Hospitalization, Other)
  Sender: FDA-Public Use
  Company Number: JP-JNJFOC-20090706466

PATIENT
  Age: 64 Year
  Sex: Male

DRUGS (1)
  1. GRISEOFULVIN [Suspect]
     Indication: TRICHOPHYTOSIS
     Route: 048

REACTIONS (1)
  - SYSTEMIC LUPUS ERYTHEMATOSUS [None]
